FAERS Safety Report 5236295-4 (Version None)
Quarter: 2007Q1

REPORT INFORMATION
  Report Type: 
  Country: None (occurrence: None)
  Receive Date: 20070212
  Receipt Date: 20070131
  Transmission Date: 20070707
  Serious: Yes (Death, Life-Threatening)
  Sender: FDA-Public Use
  Company Number: JP-PFIZER INC-2007006224

PATIENT
  Sex: Male
  Weight: 40 kg

DRUGS (12)
  1. IRINOTECAN HCL [Suspect]
     Indication: LARGE INTESTINE CARCINOMA
     Route: 042
     Dates: start: 20060808, end: 20061219
  2. OMEPRAL [Concomitant]
  3. HYPEN [Concomitant]
  4. OXYCONTIN [Concomitant]
  5. FURTULON [Concomitant]
  6. MYSLEE [Concomitant]
     Route: 048
     Dates: start: 20061225, end: 20061229
  7. LASIX [Concomitant]
     Route: 048
     Dates: start: 20061219, end: 20061229
  8. NAUZELIN [Concomitant]
     Route: 048
     Dates: start: 20061016, end: 20061211
  9. LOXONIN [Concomitant]
     Route: 048
  10. RIVOTRIL [Concomitant]
     Route: 048
  11. NEUROTROPIN [Concomitant]
     Dosage: TEXT:8T-FREQ:4 DOSAGE FORMS, 2 IN 1 DAY
     Route: 048
  12. NEUTROGIN [Concomitant]
     Route: 058
     Dates: start: 20061230, end: 20070113

REACTIONS (6)
  - ANOREXIA [None]
  - DIARRHOEA [None]
  - HEPATIC FUNCTION ABNORMAL [None]
  - LARGE INTESTINE PERFORATION [None]
  - MALAISE [None]
  - PANCYTOPENIA [None]
